FAERS Safety Report 6973689-0 (Version None)
Quarter: 2010Q3

REPORT INFORMATION
  Report Type: 
  Country: None (occurrence: None)
  Receive Date: 20100909
  Receipt Date: 20100826
  Transmission Date: 20110219
  Serious: Yes (Hospitalization, Other)
  Sender: FDA-Public Use
  Company Number: US-ELI_LILLY_AND_COMPANY-US201008008789

PATIENT
  Sex: Female

DRUGS (29)
  1. FORTEO [Suspect]
     Indication: OSTEOPOROSIS
     Dosage: 20 UG, DAILY (1/D)
  2. NOVOLOG MIX 70/30 [Concomitant]
  3. ALBUTEROL [Concomitant]
     Dosage: UNK, AS NEEDED
  4. ASPIRIN [Concomitant]
     Dosage: 325 MG, UNK
  5. CALCIUM [Concomitant]
     Dosage: 1000 MG, 2/D
  6. CLARINEX [Concomitant]
     Dosage: 5 MG, DAILY (1/D)
  7. COREG [Concomitant]
     Dosage: 50 MG, 2/D
  8. CYMBALTA [Concomitant]
     Dosage: 60 MG, EACH MORNING
  9. FISH OIL [Concomitant]
     Dosage: 1200 MG, DAILY (1/D)
  10. GABAPENTIN [Concomitant]
     Dosage: 300 MG, 2/D
  11. IBUPROFEN [Concomitant]
     Dosage: UNK, AS NEEDED
  12. TYLENOL (CAPLET) [Concomitant]
     Dosage: UNK, AS NEEDED
  13. L-ARGININE /00126102/ [Concomitant]
     Dosage: UNK, 2/D
  14. LASIX [Concomitant]
     Dosage: 40 MG, DAILY (1/D)
  15. LISINOPRIL [Concomitant]
     Dosage: 40 MG, DAILY (1/D)
  16. MAGNESIUM [Concomitant]
     Dosage: 250 MG, DAILY (1/D)
  17. MOBIC [Concomitant]
     Dosage: UNK, DAILY (1/D)
  18. MULTI-VITAMIN [Concomitant]
     Dosage: UNK, 2/D
  19. VITAMIN D [Concomitant]
  20. NEXIUM [Concomitant]
     Dosage: 20 MG, DAILY (1/D)
  21. NITROGLYCERIN [Concomitant]
     Dosage: UNK, AS NEEDED
  22. NORVASC [Concomitant]
     Dosage: 2.5 MG, DAILY (1/D)
  23. PLAVIX [Concomitant]
     Dosage: 75 MG, DAILY (1/D)
  24. POTASSIUM [Concomitant]
     Dosage: 20 MEQ, 2/D
  25. SINGULAIR [Concomitant]
     Dosage: 10 MG, DAILY (1/D)
  26. TRAZODONE HCL [Concomitant]
     Dosage: 2000 MG, UNK
  27. ASCORBIC ACID [Concomitant]
     Dosage: 1000 MG, DAILY (1/D)
  28. WELLBUTRIN SR [Concomitant]
     Dosage: 200 MG, DAILY (1/D)
  29. ZOCOR [Concomitant]
     Dosage: 80 MG, EACH EVENING

REACTIONS (10)
  - ARTHRITIS INFECTIVE [None]
  - BONE DENSITY DECREASED [None]
  - CHONDROPATHY [None]
  - COELIAC DISEASE [None]
  - DRUG INEFFECTIVE [None]
  - ERYTHEMA [None]
  - HAEMATOCHEZIA [None]
  - JOINT SWELLING [None]
  - PYREXIA [None]
  - THROMBOSIS [None]
